FAERS Safety Report 18576468 (Version 9)
Quarter: 2025Q2

REPORT INFORMATION
  Report Type: Spontaneous
  Country: US (occurrence: US)
  Receive Date: 20201203
  Receipt Date: 20250612
  Transmission Date: 20250717
  Serious: Yes (Other)
  Sender: PFIZER
  Company Number: US-PFIZER INC-2020324529

PATIENT
  Age: 65 Year
  Sex: Male

DRUGS (5)
  1. MEKTOVI [Suspect]
     Active Substance: BINIMETINIB
     Indication: Pancreatic carcinoma
     Dosage: 45 MG, 1X/DAY FOR 21 DAYS (TAKE 3 TABLETS BY MOUTH ONCE DAILY)
     Route: 048
  2. MEKTOVI [Suspect]
     Active Substance: BINIMETINIB
  3. BRAFTOVI [Suspect]
     Active Substance: ENCORAFENIB
     Indication: Pancreatic carcinoma
     Dosage: 450 MG, 1X/DAY (FOR 21 DAYS)
     Route: 048
  4. BRAFTOVI [Suspect]
     Active Substance: ENCORAFENIB
  5. BRAFTOVI [Suspect]
     Active Substance: ENCORAFENIB
     Dosage: 450 MG, DAILY
     Route: 048

REACTIONS (5)
  - Acinar cell carcinoma of pancreas [Unknown]
  - Malignant neoplasm progression [Unknown]
  - Off label use [Unknown]
  - Fatigue [Unknown]
  - Loss of personal independence in daily activities [Unknown]
